FAERS Safety Report 4297817-3 (Version None)
Quarter: 2004Q1

REPORT INFORMATION
  Report Type: 
  Country: None (occurrence: None)
  Receive Date: 20040213
  Receipt Date: 20040203
  Transmission Date: 20041129
  Serious: Yes (Death, Hospitalization, Other)
  Sender: FDA-Public Use
  Company Number: 2003-12-0988

PATIENT
  Age: 46 Year
  Sex: Male

DRUGS (2)
  1. TEMODAL [Suspect]
     Indication: EPENDYMOMA
     Dosage: 100 MG QD ORAL
     Route: 048
     Dates: start: 20031207, end: 20031211
  2. CORTICOSTEROID NOS [Concomitant]

REACTIONS (4)
  - DEHYDRATION [None]
  - INTRACRANIAL PRESSURE INCREASED [None]
  - METASTASES TO CENTRAL NERVOUS SYSTEM [None]
  - RENAL FAILURE ACUTE [None]
